FAERS Safety Report 18299977 (Version 1)
Quarter: 2020Q3

REPORT INFORMATION
  Report Type: Spontaneous
  Country: US (occurrence: US)
  Receive Date: 20200922
  Receipt Date: 20200922
  Transmission Date: 20201103
  Serious: No
  Sender: FDA-Public Use
  Company Number: None

PATIENT
  Age: 73 Year
  Sex: Male
  Weight: 88.7 kg

DRUGS (15)
  1. ASPIRIN 81MG [Concomitant]
     Active Substance: ASPIRIN
  2. CARDIZEM 180MG [Concomitant]
  3. VITAMIN D3 50MCG [Concomitant]
  4. GABAPENTIN 800MG [Concomitant]
     Active Substance: GABAPENTIN
  5. VENTOLIN HFA [Concomitant]
     Active Substance: ALBUTEROL SULFATE
  6. ROSUVASTATIN 20MG [Concomitant]
     Active Substance: ROSUVASTATIN
  7. SILDENAFIL 50MG [Concomitant]
     Active Substance: SILDENAFIL
  8. FLOMAX 0.4MG [Concomitant]
  9. MARIJUANA [Concomitant]
     Active Substance: CANNABIS SATIVA SUBSP. INDICA TOP
  10. ERLEADA [Suspect]
     Active Substance: APALUTAMIDE
     Indication: PROSTATE CANCER
     Route: 048
     Dates: start: 20200922
  11. OXYCODONE 5MG [Concomitant]
     Active Substance: OXYCODONE
  12. AMBIEN [Concomitant]
     Active Substance: ZOLPIDEM TARTRATE
  13. FOLIC ACID. [Concomitant]
     Active Substance: FOLIC ACID
  14. ALPHA LIPOIC ACID 200MG [Concomitant]
  15. HYDROCORTISONE10MG [Concomitant]

REACTIONS (1)
  - Gastric disorder [None]

NARRATIVE: CASE EVENT DATE: 20200922
